FAERS Safety Report 7520298-0 (Version None)
Quarter: 2011Q2

REPORT INFORMATION
  Report Type: 
  Country: None (occurrence: None)
  Receive Date: 20110602
  Receipt Date: 20110414
  Transmission Date: 20111010
  Serious: Yes (Other)
  Sender: FDA-Public Use
  Company Number: US-BAYER-201024774NA

PATIENT
  Age: 58 Year
  Sex: Female
  Weight: 70 kg

DRUGS (35)
  1. MAGNEVIST [Suspect]
     Indication: IMAGING PROCEDURE
     Dates: start: 20050526, end: 20050526
  2. OMNISCAN [Suspect]
     Indication: IMAGING PROCEDURE
  3. OPTIMARK [Suspect]
     Indication: NUCLEAR MAGNETIC RESONANCE IMAGING
  4. CONTRAST MEDIA [Suspect]
     Indication: ANGIOGRAM
  5. EPOGEN [Concomitant]
     Indication: ANAEMIA
     Dates: start: 19860101
  6. CORTICOSTEROIDS [Concomitant]
     Dates: start: 19860101, end: 19960101
  7. PHOSLO [Concomitant]
  8. RENAGEL [Concomitant]
  9. ASPIRIN [Concomitant]
     Dosage: 81 MG, TID
  10. SENSIPAR [Concomitant]
  11. ROBAXIN [Concomitant]
  12. IMMUNOSUPPRESSIVE AGENTS [Concomitant]
     Dosage: UNK
     Dates: start: 19860101, end: 19960101
  13. STEROID ANTIBACTERIALS [Concomitant]
     Indication: ORGAN TRANSPLANT
     Dosage: UNK
     Dates: start: 19860101, end: 19960101
  14. CONTRAST MEDIA [Suspect]
     Indication: NUCLEAR MAGNETIC RESONANCE IMAGING
     Dates: start: 20031220, end: 20031220
  15. NEPHROCAPS [Concomitant]
  16. COLCHICINE [Concomitant]
  17. IMMUNOSUPPRESSIVE AGENTS [Concomitant]
     Indication: ORGAN TRANSPLANT
     Dosage: UNK
     Dates: start: 19860101, end: 19960101
  18. ANTITHROMBOTIC AGENTS [Concomitant]
     Indication: THROMBOSIS PROPHYLAXIS
     Dosage: UNK
     Dates: start: 20050101, end: 20080101
  19. SYNTHROID [Concomitant]
     Dosage: 0.125 MG, QD
  20. MULTIHANCE [Suspect]
     Indication: IMAGING PROCEDURE
  21. NEURONTIN [Concomitant]
     Indication: RESTLESS LEGS SYNDROME
     Dosage: 200 MG, HS
  22. IRON SUPPLEMENT [Concomitant]
     Indication: ANAEMIA
     Dosage: 1 TABLET, QD
     Dates: start: 20000101
  23. FOLBEE [Concomitant]
     Indication: SUPPLEMENTATION THERAPY
     Dosage: 1 TABLET, QD
  24. HORMONES AND RELATED AGENTS [Concomitant]
     Indication: HORMONE REPLACEMENT THERAPY
     Dosage: UNK
     Dates: start: 19820101, end: 20060101
  25. CALCITRIOL [Concomitant]
     Dosage: 0.5 MG, BID
  26. NORVASC [Concomitant]
     Dosage: 5 MG, UNK
  27. KLONOPIN [Concomitant]
     Indication: RESTLESS LEGS SYNDROME
     Dosage: 0.5 MG, HS
  28. MIDODRINE HYDROCHLORIDE [Concomitant]
     Indication: HYPOTENSION
     Dosage: 10 MG, QD
  29. COUMADIN [Concomitant]
     Dosage: 2.5 MG, UNK
  30. PROHANCE [Suspect]
     Indication: IMAGING PROCEDURE
  31. LEVOTHYROXINE SODIUM [Concomitant]
     Indication: HYPOTHYROIDISM
     Dosage: 0.125 MG, QD
  32. GABAPENTIN [Concomitant]
  33. ZEMPLAR [Concomitant]
     Dosage: 10 MCG
     Route: 042
  34. MAGNEVIST [Suspect]
     Indication: NUCLEAR MAGNETIC RESONANCE IMAGING BRAIN
     Dosage: 15 ML, UNK
     Dates: start: 20060530
  35. PLAVIX [Concomitant]
     Indication: THROMBOSIS PROPHYLAXIS
     Dosage: 75 MG, QD

REACTIONS (19)
  - MOBILITY DECREASED [None]
  - PAIN IN EXTREMITY [None]
  - MUSCULAR WEAKNESS [None]
  - SKIN DISORDER [None]
  - ANXIETY [None]
  - SKIN BURNING SENSATION [None]
  - PRURITUS [None]
  - ANHEDONIA [None]
  - JOINT STIFFNESS [None]
  - SKIN HYPERTROPHY [None]
  - SCAB [None]
  - SKIN SWELLING [None]
  - SKIN INDURATION [None]
  - LIVEDO RETICULARIS [None]
  - SKIN FIBROSIS [None]
  - NEPHROGENIC SYSTEMIC FIBROSIS [None]
  - SKIN HYPERPIGMENTATION [None]
  - PEAU D'ORANGE [None]
  - SCAR [None]
